FAERS Safety Report 12388301 (Version 3)
Quarter: 2016Q3

REPORT INFORMATION
  Report Type: Spontaneous
  Country: JP (occurrence: JP)
  Receive Date: 20160520
  Receipt Date: 20160809
  Transmission Date: 20161109
  Serious: Yes (Hospitalization)
  Sender: FDA-Public Use
  Company Number: PHJP2016JP012801

PATIENT
  Age: 51 Year
  Sex: Female
  Weight: 60 kg

DRUGS (14)
  1. SENNOSIDE [Concomitant]
     Active Substance: SENNOSIDES
     Indication: CONSTIPATION
     Dosage: 36 MG, QD
     Route: 048
     Dates: start: 20150718
  2. EBASTEL [Concomitant]
     Active Substance: EBASTINE
     Indication: SEASONAL ALLERGY
     Dosage: 10 MG, QD
     Route: 048
     Dates: start: 20160201, end: 20160518
  3. CONTOMIN//CHLORPROMAZINE HYDROCHLORIDE [Concomitant]
     Indication: INSOMNIA
     Dosage: 50 MG, QD
     Route: 048
     Dates: start: 20150718, end: 20160518
  4. LIMAS [Concomitant]
     Active Substance: LITHIUM CARBONATE
     Indication: BIPOLAR DISORDER
     Dosage: 500 MG, QD
     Route: 048
     Dates: start: 20150718
  5. LENDORMIN [Concomitant]
     Active Substance: BROTIZOLAM
     Indication: INSOMNIA
     Dosage: 0.5 MG, QD
     Route: 048
     Dates: start: 20150718
  6. ZYPREXA [Concomitant]
     Active Substance: OLANZAPINE
     Indication: BIPOLAR DISORDER
     Dosage: 20 MG, QD
     Route: 048
     Dates: start: 20150718
  7. FERROMIA [Concomitant]
     Active Substance: FERROUS CITRATE
     Indication: ANAEMIA
     Dosage: 50 MG, QD
     Route: 048
     Dates: start: 20150910, end: 20160518
  8. TEGRETOL [Suspect]
     Active Substance: CARBAMAZEPINE
     Indication: BIPOLAR I DISORDER
     Dosage: 100 MG, TID
     Route: 048
     Dates: start: 20160502, end: 20160505
  9. DEPAKENE [Concomitant]
     Active Substance: VALPROIC ACID
     Indication: BIPOLAR DISORDER
     Dosage: 1000 MG, QD
     Route: 048
     Dates: start: 20150718, end: 20160518
  10. BIPERIDEN [Concomitant]
     Active Substance: BIPERIDEN
     Indication: PARKINSON^S DISEASE
     Dosage: 2 MG, BID
     Route: 048
     Dates: start: 20150718, end: 20160518
  11. PYRETHIA//PROMETHAZINE METHYLENE DISALICYLATE [Concomitant]
     Indication: PARKINSON^S DISEASE
     Dosage: 25 MG, BID
     Route: 048
     Dates: start: 20150718, end: 20160518
  12. MAGMITT [Concomitant]
     Active Substance: MAGNESIUM OXIDE
     Indication: GASTROINTESTINAL DISORDER
     Dosage: 660 MG, TID
     Route: 048
     Dates: start: 20150718, end: 20160518
  13. ABILIFY [Concomitant]
     Active Substance: ARIPIPRAZOLE
     Indication: BIPOLAR DISORDER
     Dosage: 6 MG, QD
     Route: 048
     Dates: start: 20150718
  14. PANTETHINE [Concomitant]
     Active Substance: PANTETHINE
     Indication: GASTROINTESTINAL DISORDER
     Dosage: 200 MG, TID
     Route: 048
     Dates: start: 20150718, end: 20160518

REACTIONS (7)
  - Drug eruption [Recovered/Resolved]
  - Blood creatinine increased [Recovered/Resolved]
  - Blood glucose decreased [Unknown]
  - Neutrophil percentage increased [Recovered/Resolved]
  - Lymphocyte percentage decreased [Unknown]
  - Generalised erythema [Recovered/Resolved]
  - Ileus paralytic [Recovered/Resolved]

NARRATIVE: CASE EVENT DATE: 20160505
